FAERS Safety Report 19077082 (Version 1)
Quarter: 2021Q1

REPORT INFORMATION
  Report Type: Spontaneous
  Country: US (occurrence: US)
  Receive Date: 20210330
  Receipt Date: 20210330
  Transmission Date: 20210420
  Serious: Yes (Other)
  Sender: FDA-Public Use
  Company Number: None

PATIENT
  Age: 23 Year
  Sex: Female
  Weight: 63 kg

DRUGS (1)
  1. SERIOUS ACTION ACNE ACTION PAC [Suspect]
     Active Substance: BENZOYL PEROXIDE\SALICYLIC ACID
     Indication: SKIN DISORDER
     Dosage: ?          QUANTITY:4 DROP(S);?
     Route: 061
     Dates: start: 20210327, end: 20210329

REACTIONS (4)
  - Emotional disorder [None]
  - Skin discolouration [None]
  - Skin exfoliation [None]
  - Application site burn [None]

NARRATIVE: CASE EVENT DATE: 20210329
